FAERS Safety Report 20735366 (Version 1)
Quarter: 2022Q2

REPORT INFORMATION
  Report Type: Report from Study
  Country: US (occurrence: US)
  Receive Date: 20220421
  Receipt Date: 20220421
  Transmission Date: 20220720
  Serious: Yes (Hospitalization)
  Sender: FDA-Public Use
  Company Number: US-EXELIXIS-CABO-22050558

PATIENT
  Sex: Male

DRUGS (20)
  1. CABOMETYX [Suspect]
     Active Substance: CABOZANTINIB S-MALATE
     Indication: Renal cancer
     Dosage: 40 MG, QD
     Route: 048
     Dates: start: 20220331
  2. OPDIVO [Concomitant]
     Active Substance: NIVOLUMAB
  3. ALLEGRA [Concomitant]
     Active Substance: FEXOFENADINE HYDROCHLORIDE
     Dosage: UNK
  4. AMBIEN [Concomitant]
     Active Substance: ZOLPIDEM TARTRATE
     Dosage: UNK
  5. ASPIRIN [Concomitant]
     Active Substance: ASPIRIN
     Dosage: UNK
  6. ATORVASTATIN [Concomitant]
     Active Substance: ATORVASTATIN
     Dosage: UNK
  7. CELEXA [Concomitant]
     Active Substance: CITALOPRAM HYDROBROMIDE
     Dosage: UNK
  8. CINNAMON [Concomitant]
     Active Substance: CINNAMON
  9. COENZYME Q10 [Concomitant]
     Active Substance: DIETARY SUPPLEMENT\UBIDECARENONE
  10. COLACE [Concomitant]
     Active Substance: DOCUSATE SODIUM
  11. COLCHICINE [Concomitant]
     Active Substance: COLCHICINE
  12. ENDUR-ACIN [Concomitant]
  13. FERROUS SULFATE [Concomitant]
     Active Substance: FERROUS SULFATE
  14. FISH OIL [Concomitant]
     Active Substance: FISH OIL
  15. VITAMINS [Concomitant]
     Active Substance: VITAMINS
  16. NITROGLYCERIN [Concomitant]
     Active Substance: NITROGLYCERIN
  17. PROTONIX [Concomitant]
     Active Substance: PANTOPRAZOLE SODIUM
  18. PROVIGIL [Concomitant]
     Active Substance: MODAFINIL
  19. TYLENOL [Concomitant]
     Active Substance: ACETAMINOPHEN
  20. MI ALAX [Concomitant]

REACTIONS (1)
  - Full blood count decreased [Not Recovered/Not Resolved]
